FAERS Safety Report 8784599 (Version 1)
Quarter: 2012Q4

REPORT INFORMATION
  Report Type: Spontaneous
  Country: US (occurrence: None)
  Receive Date: 20120907
  Receipt Date: 20120907
  Transmission Date: 20130627
  Serious: No
  Sender: FDA-Public Use
  Company Number: None

PATIENT
  Age: 51 Year
  Sex: Female
  Weight: 70.99 kg

DRUGS (1)
  1. CLOPIDOGREL [Suspect]
     Indication: CORONARY ATHEROSCLEROSIS
     Route: 048
     Dates: start: 20120516, end: 20120820

REACTIONS (6)
  - Hyperhidrosis [None]
  - Nausea [None]
  - Confusional state [None]
  - Vision blurred [None]
  - Palpitations [None]
  - Product substitution issue [None]
